FAERS Safety Report 20854670 (Version 1)
Quarter: 2022Q2

REPORT INFORMATION
  Report Type: Report from Study
  Country: BR (occurrence: BR)
  Receive Date: 20220520
  Receipt Date: 20220520
  Transmission Date: 20220720
  Serious: Yes (Other)
  Sender: FDA-Public Use
  Company Number: BR-ABBVIE-22K-020-4400723-00

PATIENT
  Age: 57 Year
  Sex: Female
  Weight: 64 kg

DRUGS (2)
  1. RINVOQ [Suspect]
     Active Substance: UPADACITINIB
     Indication: Rheumatoid arthritis
     Route: 048
     Dates: start: 20211025
  2. ESCITALOPRAM [Concomitant]
     Active Substance: ESCITALOPRAM OXALATE
     Indication: Antidepressant therapy

REACTIONS (7)
  - Suicidal ideation [Unknown]
  - Depression [Recovering/Resolving]
  - COVID-19 [Recovered/Resolved]
  - Asthenia [Unknown]
  - Discouragement [Unknown]
  - Memory impairment [Not Recovered/Not Resolved]
  - Pharyngeal inflammation [Unknown]

NARRATIVE: CASE EVENT DATE: 20220101
